FAERS Safety Report 5302588-5 (Version None)
Quarter: 2007Q2

REPORT INFORMATION
  Report Type: 
  Country: None (occurrence: None)
  Receive Date: 20070419
  Receipt Date: 20070412
  Transmission Date: 20071010
  Serious: Yes (Other)
  Sender: FDA-Public Use
  Company Number: US-ROXANE LABORATORIES, INC-2007-BP-04998RO

PATIENT
  Age: 31 Day
  Sex: Female
  Weight: 3 kg

DRUGS (1)
  1. LORAZEPAM INTENSOL [Suspect]
     Dosage: 0.3 MG X 1 DOSE (WRONG ROUTE)
     Route: 042
     Dates: start: 20070412, end: 20070412

REACTIONS (1)
  - INCORRECT ROUTE OF DRUG ADMINISTRATION [None]
